FAERS Safety Report 24648929 (Version 1)
Quarter: 2024Q4

REPORT INFORMATION
  Report Type: Spontaneous
  Country: FR (occurrence: FR)
  Receive Date: 20241121
  Receipt Date: 20241121
  Transmission Date: 20250114
  Serious: Yes (Hospitalization)
  Sender: TEVA
  Company Number: None

PATIENT
  Age: 55 Year
  Sex: Male

DRUGS (5)
  1. KETOPROFEN [Suspect]
     Active Substance: KETOPROFEN
     Indication: Product used for unknown indication
     Route: 065
     Dates: start: 20241008, end: 20241009
  2. VISIPAQUE [Suspect]
     Active Substance: IODIXANOL
     Indication: Angiogram cerebral
     Dosage: 320 MG I/ML
     Route: 013
     Dates: start: 20241008, end: 20241008
  3. ACETAMINOPHEN\OPIUM [Suspect]
     Active Substance: ACETAMINOPHEN\OPIUM
     Indication: Product used for unknown indication
     Dosage: 500 MG/25 MG
     Route: 048
     Dates: start: 20241008, end: 20241009
  4. TICAGRELOR [Suspect]
     Active Substance: TICAGRELOR
     Indication: Aneurysm repair
     Route: 048
     Dates: start: 20241008
  5. NEFOPAM HYDROCHLORIDE [Suspect]
     Active Substance: NEFOPAM HYDROCHLORIDE
     Indication: Product used for unknown indication
     Route: 048
     Dates: start: 20241008, end: 20241009

REACTIONS (1)
  - Rash maculo-papular [Unknown]

NARRATIVE: CASE EVENT DATE: 20241009
